FAERS Safety Report 20344512 (Version 3)
Quarter: 2022Q3

REPORT INFORMATION
  Report Type: Other
  Country: US (occurrence: None)
  Receive Date: 20220118
  Receipt Date: 20220816
  Transmission Date: 20221027
  Serious: Yes (Hospitalization)
  Sender: FDA-Public Use
  Company Number: US-ROCHE-2924448

PATIENT
  Age: 74 Year
  Sex: Female
  Weight: 84.898 kg

DRUGS (5)
  1. ESBRIET [Suspect]
     Active Substance: PIRFENIDONE
     Indication: Idiopathic pulmonary fibrosis
     Dosage: 2 TABLETS 3 TIMES A DAY
     Route: 048
  2. ALBUTEROL [Concomitant]
     Active Substance: ALBUTEROL
  3. ASPIRIN [Concomitant]
     Active Substance: ASPIRIN
  4. ALLOPURINOL [Concomitant]
     Active Substance: ALLOPURINOL
  5. METOPROLOL [Concomitant]
     Active Substance: METOPROLOL

REACTIONS (2)
  - Nausea [Unknown]
  - COVID-19 [Recovered/Resolved]

NARRATIVE: CASE EVENT DATE: 20211213
